FAERS Safety Report 11595958 (Version 1)
Quarter: 2015Q4

REPORT INFORMATION
  Report Type: Spontaneous
  Country: GB (occurrence: GB)
  Receive Date: 20151006
  Receipt Date: 20151006
  Transmission Date: 20160304
  Serious: Yes (Other)
  Sender: FDA-Public Use
  Company Number: GB-JNJFOC-20150917651

PATIENT
  Sex: Male

DRUGS (3)
  1. NUROFEN EXPRESS (IBUPROFEN LYSINATE) [Suspect]
     Active Substance: IBUPROFEN LYSINE
     Indication: ARTHRALGIA
     Dosage: PATIENT HAD BEEN TAKING TABLETS REGULARLY FOR AROUND 12 MONTHS.
     Route: 065
  2. IBUPROFEN. [Suspect]
     Active Substance: IBUPROFEN
     Route: 065
  3. IBUPROFEN. [Suspect]
     Active Substance: IBUPROFEN
     Indication: ARTHRALGIA
     Route: 065

REACTIONS (3)
  - Incorrect drug administration duration [Unknown]
  - Gastric ulcer perforation [Unknown]
  - Gastric ulcer [Unknown]
